FAERS Safety Report 18967986 (Version 1)
Quarter: 2021Q1

REPORT INFORMATION
  Report Type: Spontaneous
  Country: US (occurrence: US)
  Receive Date: 20210304
  Receipt Date: 20210304
  Transmission Date: 20210420
  Serious: No
  Sender: FDA-Public Use
  Company Number: US-AMGEN-USASP2021032766

PATIENT
  Age: 62 Year
  Sex: Female

DRUGS (2)
  1. ESTRADIOL. [Concomitant]
     Active Substance: ESTRADIOL
     Dosage: UNK
  2. OTEZLA [Suspect]
     Active Substance: APREMILAST
     Indication: PSORIASIS
     Dosage: 30 MILLIGRAM, QD
     Route: 048
     Dates: start: 20160718

REACTIONS (2)
  - Psoriasis [Not Recovered/Not Resolved]
  - Sensitivity to weather change [Not Recovered/Not Resolved]

NARRATIVE: CASE EVENT DATE: 20210226
